FAERS Safety Report 8477346-3 (Version None)
Quarter: 2012Q2

REPORT INFORMATION
  Report Type: 
  Country: None (occurrence: None)
  Receive Date: 20120620
  Receipt Date: 20120608
  Transmission Date: 20120825
  Serious: Yes (Other)
  Sender: FDA-Public Use
  Company Number: DSA_57893_2012

PATIENT
  Sex: Male

DRUGS (5)
  1. VALTREX [Concomitant]
  2. VIAGRA [Concomitant]
  3. ELIDEL [Suspect]
     Indication: ECZEMA
     Dosage: (DF TOPICAL)
     Route: 061
  4. TRAMCINOLONE ACETONIDE [Concomitant]
  5. ASPIRIN [Concomitant]

REACTIONS (14)
  - THYROID CANCER [None]
  - PHARYNGITIS [None]
  - DIVERTICULUM [None]
  - ORAL HERPES [None]
  - HYPERTRIGLYCERIDAEMIA [None]
  - LARYNGITIS [None]
  - COLONIC POLYP [None]
  - NEUROPATHY PERIPHERAL [None]
  - LYMPHOMA [None]
  - INJURY [None]
  - CONJUNCTIVITIS [None]
  - FOLLICULITIS [None]
  - HYDROCELE [None]
  - HYPOTHYROIDISM [None]
